FAERS Safety Report 12752554 (Version 3)
Quarter: 2018Q1

REPORT INFORMATION
  Report Type: Report from Study
  Country: US (occurrence: US)
  Receive Date: 20160915
  Receipt Date: 20180314
  Transmission Date: 20180508
  Serious: Yes (Other)
  Sender: FDA-Public Use
  Company Number: US-ASTELLAS-2015US037031

PATIENT
  Age: 58 Year
  Sex: Male

DRUGS (1)
  1. ENZALUTAMIDE [Suspect]
     Active Substance: ENZALUTAMIDE
     Indication: PROSTATE CANCER
     Route: 048
     Dates: start: 20150610

REACTIONS (7)
  - Platelet count decreased [Unknown]
  - Glaucoma [Unknown]
  - Dry eye [Unknown]
  - White blood cell count decreased [Unknown]
  - Amnesia [Unknown]
  - Visual impairment [Unknown]
  - Amnesia [Unknown]

NARRATIVE: CASE EVENT DATE: 201506
